FAERS Safety Report 5409890-7 (Version None)
Quarter: 2007Q3

REPORT INFORMATION
  Report Type: 
  Country: None (occurrence: None)
  Receive Date: 20070809
  Receipt Date: 20070730
  Transmission Date: 20080115
  Serious: Yes (Hospitalization)
  Sender: FDA-Public Use
  Company Number: US-BAXTER-2007BH006763

PATIENT
  Age: 10 Year
  Sex: Female

DRUGS (3)
  1. GAMMAGARD S/D [Suspect]
     Indication: IMMUNODEFICIENCY
     Dosage: DOSE UNIT:UNKNOWN
     Route: 042
     Dates: start: 20070216, end: 20070216
  2. GAMMAGARD S/D [Suspect]
     Dosage: DOSE UNIT:UNKNOWN
     Route: 042
     Dates: start: 20070317, end: 20070317
  3. GAMMAGARD S/D [Suspect]
     Dosage: DOSE UNIT:UNKNOWN
     Route: 042
     Dates: start: 20070317, end: 20070317

REACTIONS (3)
  - HEADACHE [None]
  - MENINGITIS ASEPTIC [None]
  - MUSCULOSKELETAL STIFFNESS [None]
